FAERS Safety Report 4853128-6 (Version None)
Quarter: 2005Q4

REPORT INFORMATION
  Report Type: 
  Country: None (occurrence: None)
  Receive Date: 20051212
  Receipt Date: 20051205
  Transmission Date: 20060501
  Serious: Yes (Death)
  Sender: FDA-Public Use
  Company Number: 2005-135279-NL

PATIENT
  Age: 36 Year
  Sex: Female

DRUGS (3)
  1. DESOGESTREL AND ETHINYL ESTRADIOL [Suspect]
     Dosage: DF ORAL
     Route: 048
  2. OLANZAPINE [Concomitant]
  3. VALERIAN EXTRACT [Concomitant]

REACTIONS (3)
  - CARDIAC ARREST [None]
  - CARDIOVASCULAR DISORDER [None]
  - ELECTROCARDIOGRAM QT CORRECTED INTERVAL PROLONGED [None]
